FAERS Safety Report 6115031-3 (Version None)
Quarter: 2009Q1

REPORT INFORMATION
  Report Type: 
  Country: None (occurrence: None)
  Receive Date: 20090313
  Receipt Date: 20090306
  Transmission Date: 20090719
  Serious: Yes (Hospitalization)
  Sender: FDA-Public Use
  Company Number: A0772858A

PATIENT
  Age: 60 Year
  Sex: Female
  Weight: 102.3 kg

DRUGS (5)
  1. AVANDIA [Suspect]
     Indication: DIABETES MELLITUS
     Route: 048
     Dates: start: 20050415, end: 20070401
  2. ALTACE [Concomitant]
  3. NIFEDIPINE [Concomitant]
  4. OXYCODONE [Concomitant]
  5. DIOVAN [Concomitant]

REACTIONS (3)
  - ANGIOPLASTY [None]
  - CARDIAC FAILURE CONGESTIVE [None]
  - STENT PLACEMENT [None]
